FAERS Safety Report 22040360 (Version 1)
Quarter: 2023Q1

REPORT INFORMATION
  Report Type: Report from Study
  Country: UY (occurrence: UY)
  Receive Date: 20230227
  Receipt Date: 20230227
  Transmission Date: 20230417
  Serious: Yes (Other)
  Sender: FDA-Public Use
  Company Number: UY-ABBVIE-4208000

PATIENT
  Age: 57 Year
  Sex: Female

DRUGS (1)
  1. HUMIRA [Suspect]
     Active Substance: ADALIMUMAB
     Indication: Rheumatoid arthritis
     Route: 058
     Dates: start: 20110101

REACTIONS (3)
  - Cardiac failure [Unknown]
  - Arthralgia [Unknown]
  - Aortic valve calcification [Unknown]

NARRATIVE: CASE EVENT DATE: 20220601
